FAERS Safety Report 18953700 (Version 1)
Quarter: 2021Q1

REPORT INFORMATION
  Report Type: Spontaneous
  Country: US (occurrence: US)
  Receive Date: 20210301
  Receipt Date: 20210301
  Transmission Date: 20210420
  Serious: Yes (Hospitalization)
  Sender: FDA-Public Use
  Company Number: None

PATIENT
  Sex: Female

DRUGS (1)
  1. ENBREL [Suspect]
     Active Substance: ETANERCEPT
     Indication: RHEUMATOID ARTHRITIS
     Dosage: ?          OTHER FREQUENCY:ONCE  A WEEK;?
     Route: 058
     Dates: start: 20210203

REACTIONS (4)
  - Pain [None]
  - Condition aggravated [None]
  - Loss of personal independence in daily activities [None]
  - Therapy non-responder [None]
